FAERS Safety Report 16119169 (Version 1)
Quarter: 2019Q1

REPORT INFORMATION
  Report Type: Spontaneous
  Country: US (occurrence: US)
  Receive Date: 20190326
  Receipt Date: 20190326
  Transmission Date: 20190418
  Serious: No
  Sender: FDA-Public Use
  Company Number: US-BAYER-2019-058114

PATIENT
  Age: 64 Year
  Sex: Female
  Weight: 49.89 kg

DRUGS (1)
  1. CLARITIN [Suspect]
     Active Substance: LORATADINE
     Dosage: UNK 2 AT A TIME
     Route: 048
     Dates: start: 201903, end: 201903

REACTIONS (6)
  - Respiratory tract congestion [None]
  - Pruritus [Unknown]
  - Drug ineffective [Unknown]
  - Rhinorrhoea [Unknown]
  - Sneezing [Unknown]
  - Incorrect dose administered [Recovered/Resolved]

NARRATIVE: CASE EVENT DATE: 201903
